FAERS Safety Report 8834381 (Version 1)
Quarter: 2012Q4

REPORT INFORMATION
  Report Type: 
  Country: US (occurrence: US)
  Receive Date: 20121010
  Receipt Date: 20121010
  Transmission Date: 20130627
  Serious: No
  Sender: FDA-Public Use
  Company Number: US-ASTRAZENECA-2012SE75034

PATIENT
  Age: 70 Year
  Sex: Male
  Weight: 68 kg

DRUGS (3)
  1. LISINOPRIL [Suspect]
     Indication: BLOOD PRESSURE INCREASED
     Route: 048
     Dates: start: 20120830, end: 201209
  2. METOPROLOL SUCCINATE [Suspect]
     Indication: BLOOD PRESSURE INCREASED
     Route: 048
     Dates: end: 201209
  3. LORAZEPAM [Concomitant]
     Indication: BLOOD PRESSURE INCREASED

REACTIONS (9)
  - Hypertension [Unknown]
  - Tremor [Unknown]
  - Blood creatinine increased [Unknown]
  - Sedation [Unknown]
  - Blood urea increased [Unknown]
  - Fatigue [Unknown]
  - Somnolence [Unknown]
  - Drug intolerance [Unknown]
  - Drug ineffective [Unknown]
